FAERS Safety Report 25995540 (Version 1)
Quarter: 2025Q4

REPORT INFORMATION
  Report Type: Spontaneous
  Country: VN (occurrence: VN)
  Receive Date: 20251104
  Receipt Date: 20251104
  Transmission Date: 20260118
  Serious: Yes (Hospitalization)
  Sender: BAYER HEALTHCARE PHARMACEUTICALS INC.
  Company Number: VN-BAYER-2025A144593

PATIENT
  Age: 31 Year
  Sex: Female
  Weight: 55 kg

DRUGS (1)
  1. ULTRAVIST [Suspect]
     Active Substance: IOPROMIDE
     Indication: Computerised tomogram abdomen
     Dosage: 75 ML, QD
     Route: 042
     Dates: start: 20250806, end: 20250806

REACTIONS (5)
  - Seizure [Unknown]
  - Chills [Unknown]
  - Pallor [Unknown]
  - Blood pressure immeasurable [Unknown]
  - Pulse absent [None]

NARRATIVE: CASE EVENT DATE: 20250806
